FAERS Safety Report 7299659-3 (Version None)
Quarter: 2011Q1

REPORT INFORMATION
  Report Type: 
  Country: None (occurrence: None)
  Receive Date: 20110217
  Receipt Date: 20110211
  Transmission Date: 20110831
  Serious: Yes (Hospitalization)
  Sender: FDA-Public Use
  Company Number: DE-PFIZER INC-DE-WYE-H18243810

PATIENT
  Age: 85 Year
  Sex: Female
  Weight: 63.5 kg

DRUGS (13)
  1. PANTOPRAZOLE [Suspect]
     Indication: PROPHYLAXIS AGAINST GASTROINTESTINAL ULCER
     Dosage: 40 MG, 1X/DAY
     Route: 048
     Dates: start: 20100706
  2. LACTULOSE [Concomitant]
     Indication: CONSTIPATION
     Dosage: 5 G, 1X/DAY
     Route: 048
     Dates: start: 20100706, end: 20100723
  3. LEKOVIT CA [Concomitant]
     Indication: CALCIUM DEFICIENCY
     Dosage: 500 MG, 2X/DAY
     Route: 048
     Dates: start: 20100620, end: 20100626
  4. SIMVASTATIN [Concomitant]
     Indication: DYSLIPIDAEMIA
     Dosage: 20 MG, 1X/DAY
     Route: 048
     Dates: start: 20000101, end: 20100810
  5. METOHEXAL [Concomitant]
     Indication: HYPERTENSION
     Dosage: 25 MG, 2X/DAY
     Route: 048
     Dates: end: 20100810
  6. XIPAMIDE [Concomitant]
     Indication: HYPERTENSION
     Dosage: 5 MG, 1X/DAY
     Route: 048
     Dates: end: 20100810
  7. EMBOLEX [Concomitant]
     Dosage: 3000 IU, 1X/DAY
     Route: 058
     Dates: start: 20100706, end: 20100726
  8. FERRO SANOL [Concomitant]
     Indication: IRON DEFICIENCY ANAEMIA
     Dosage: 80 MG, 2X/DAY
     Route: 048
     Dates: start: 20100620, end: 20100810
  9. KALINOR RETARD [Concomitant]
     Indication: HYPOKALAEMIA
     Dosage: 600 MG, 1X/DAY
     Route: 048
     Dates: start: 20100706, end: 20100726
  10. ACETAMINOPHEN [Concomitant]
     Indication: PROCEDURAL PAIN
     Dosage: 500 MG, 1X/DAY
     Route: 048
     Dates: start: 20100706, end: 20100726
  11. CIPROBAY [Suspect]
     Indication: POST PROCEDURAL INFECTION
     Dosage: 500 MG, 2X/DAY
     Route: 048
     Dates: start: 20100709, end: 20100726
  12. IMBUN [Concomitant]
     Indication: PROCEDURAL PAIN
     Dosage: 800 MG, 2X/DAY
     Route: 048
     Dates: start: 20100706, end: 20100810
  13. BERLOSIN [Concomitant]
     Indication: PROCEDURAL PAIN
     Dosage: 500 MG, 4X/DAY
     Route: 048
     Dates: start: 20100618, end: 20100810

REACTIONS (4)
  - DIET REFUSAL [None]
  - CLOSTRIDIUM DIFFICILE COLITIS [None]
  - DRUG INTERACTION [None]
  - DEHYDRATION [None]
